FAERS Safety Report 23703484 (Version 1)
Quarter: 2024Q2

REPORT INFORMATION
  Report Type: Spontaneous
  Country: US (occurrence: None)
  Receive Date: 20240403
  Receipt Date: 20240403
  Transmission Date: 20240716
  Serious: Yes (Disabling)
  Sender: FDA-Public Use
  Company Number: None

PATIENT
  Age: 62 Year
  Sex: Female
  Weight: 58.97 kg

DRUGS (5)
  1. HALOPERIDOL [Suspect]
     Active Substance: HALOPERIDOL
     Indication: Paranoia
     Dosage: OTHER QUANTITY : 2;?FREQUENCY : TWICE A DAY;?
     Route: 048
     Dates: start: 202312, end: 202312
  2. HYDROXYZINE [Suspect]
     Active Substance: HYDROXYZINE HYDROCHLORIDE
     Indication: Anxiety
     Dosage: OTHER QUANTITY : 1;?FREQUENCY : DAILY;?
     Route: 048
     Dates: start: 202312, end: 202312
  3. LABETALOL [Suspect]
     Active Substance: LABETALOL\LABETALOL HYDROCHLORIDE
     Indication: Hypertension
     Dosage: OTHER QUANTITY : 2;?FREQUENCY : TWICE A DAY;?
     Route: 048
     Dates: start: 202312, end: 202312
  4. Vitamins [Concomitant]
  5. TEA [Concomitant]
     Active Substance: TEA LEAF

REACTIONS (5)
  - Hypertension [None]
  - Tachycardia [None]
  - Suspected product tampering [None]
  - Pain in extremity [None]
  - Headache [None]

NARRATIVE: CASE EVENT DATE: 20231201
